FAERS Safety Report 9612638 (Version 2)
Quarter: 2013Q4

REPORT INFORMATION
  Report Type: Spontaneous
  Country: GB (occurrence: GB)
  Receive Date: 20131010
  Receipt Date: 20131010
  Transmission Date: 20140711
  Serious: Yes (Life-Threatening)
  Sender: FDA-Public Use
  Company Number: GB-ACTAVIS-2013-02358

PATIENT
  Age: 45 Year
  Sex: Female
  Weight: 59 kg

DRUGS (4)
  1. PARACETAMOL (UNKNOWN) [Suspect]
     Indication: LARYNGITIS
     Dosage: 500 MG, UNKNOWN
     Route: 048
     Dates: start: 20121230
  2. ACETYLSALICYLIC ACID [Suspect]
     Indication: LARYNGITIS
     Dosage: 300 MG, UNKNOWN, PARACETAMOL 500MG/CODEINE 45MG/ASPIRIN 300MG PER CAPLET
     Route: 048
     Dates: start: 20121230
  3. CODEINE PHOSPHATE [Suspect]
     Indication: LARYNGITIS
     Dosage: 45 MG, PARACETAMOL 500MG/CODEINE 45MG/ASPIRIN 300MG PER CAPLET
     Route: 048
     Dates: start: 20121230
  4. CODEINE PHOSPHATE [Suspect]
     Dosage: PARACETAMOL 500MG/CODEINE 45MG/ASPIRIN 300MG PER CAPLET
     Route: 048
     Dates: start: 20121230

REACTIONS (5)
  - Sinus tachycardia [Unknown]
  - Palpitations [Unknown]
  - Emergency care examination abnormal [Recovered/Resolved]
  - Hypoaesthesia [Unknown]
  - Dizziness [Unknown]
